FAERS Safety Report 8819277 (Version 1)
Quarter: 2012Q4

REPORT INFORMATION
  Report Type: 
  Country: PT (occurrence: PT)
  Receive Date: 20121001
  Receipt Date: 20121001
  Transmission Date: 20130627
  Serious: Yes (Other)
  Sender: FDA-Public Use
  Company Number: PT-ABBOTT-12P-130-0988696-00

PATIENT
  Sex: Male

DRUGS (1)
  1. IBUPROFEN [Suspect]
     Indication: OROPHARYNGEAL PAIN
     Dates: start: 200910

REACTIONS (4)
  - Tongue oedema [Recovered/Resolved]
  - Formication [Recovered/Resolved]
  - Lip oedema [Recovered/Resolved]
  - Eyelid oedema [Recovered/Resolved]
